FAERS Safety Report 10272047 (Version 2)
Quarter: 2014Q3

REPORT INFORMATION
  Report Type: Report from Study
  Country: DE (occurrence: DE)
  Receive Date: 20140702
  Receipt Date: 20140702
  Transmission Date: 20150326
  Serious: Yes (Death, Life-Threatening, Hospitalization, Other)
  Sender: FDA-Public Use
  Company Number: PHHO2010DE17691

PATIENT

DRUGS (8)
  1. REVATIO [Concomitant]
     Active Substance: SILDENAFIL CITRATE
     Indication: PULMONARY ARTERIAL HYPERTENSION
     Dosage: 40 MG, TID
     Dates: start: 200612
  2. ILOMEDIN [Concomitant]
     Indication: PULMONARY ARTERIAL HYPERTENSION
     Dosage: 2.4 NG/KG/IN
     Dates: start: 200808
  3. CORDAREX [Suspect]
     Active Substance: AMIODARONE
     Indication: ATRIAL FIBRILLATION
     Dosage: 200 MG, 3/DAY
  4. TRACLEER [Concomitant]
     Active Substance: BOSENTAN\BOSENTAN MONOHYDRATE
     Indication: PULMONARY ARTERIAL HYPERTENSION
     Dosage: 125 MG, BID
     Dates: start: 200408
  5. MARCUMAR [Concomitant]
     Active Substance: PHENPROCOUMON
     Indication: PULMONARY ARTERIAL HYPERTENSION
     Dosage: BY INR
  6. PHENPROCOUMON [Concomitant]
     Active Substance: PHENPROCOUMON
  7. TRIARESE [Concomitant]
     Indication: PULMONARY ARTERIAL HYPERTENSION
     Dosage: 25 MG, ONCE PER DAY
  8. CGP 57148B [Suspect]
     Active Substance: IMATINIB MESYLATE
     Indication: PULMONARY ARTERIAL HYPERTENSION
     Dosage: CODE NOT BROKEN
     Route: 048
     Dates: start: 20100921, end: 20101120

REACTIONS (11)
  - Pulmonary embolism [Fatal]
  - Atrial fibrillation [Fatal]
  - Concomitant disease progression [Fatal]
  - Atrial flutter [Fatal]
  - Cardiac failure [Fatal]
  - Cardiomegaly [Fatal]
  - Cardiomyopathy [Fatal]
  - Rash [Recovering/Resolving]
  - Lung infiltration [Unknown]
  - Oedema [Fatal]
  - Bradycardia [Recovered/Resolved]

NARRATIVE: CASE EVENT DATE: 20100924
